FAERS Safety Report 8516547-2 (Version None)
Quarter: 2012Q3

REPORT INFORMATION
  Report Type: 
  Country: None (occurrence: None)
  Receive Date: 20120711
  Receipt Date: 20120711
  Transmission Date: 20120928
  Serious: Yes (Other)
  Sender: FDA-Public Use
  Company Number: None

PATIENT
  Sex: Male

DRUGS (1)
  1. IBUPROFEN [Suspect]
     Indication: PYREXIA
     Dosage: 100MG/5ML ONCE EVERY 6 HRS PO
     Route: 048
     Dates: start: 20120707, end: 20120707

REACTIONS (1)
  - EPISTAXIS [None]
